FAERS Safety Report 18523227 (Version 4)
Quarter: 2020Q4

REPORT INFORMATION
  Report Type: Report from Study
  Country: BR (occurrence: BR)
  Receive Date: 20201119
  Receipt Date: 20201209
  Transmission Date: 20210114
  Serious: Yes (Other)
  Sender: FDA-Public Use
  Company Number: BR-SHIRE-BR202016746

PATIENT
  Age: 12 Year
  Sex: Male
  Weight: 26.6 kg

DRUGS (7)
  1. IDURSULFASE [Suspect]
     Active Substance: IDURSULFASE
     Dosage: 2 DOSAGE FORM
     Route: 065
     Dates: start: 2009
  2. MELATONIN [Concomitant]
     Active Substance: MELATONIN
     Indication: PRODUCT USED FOR UNKNOWN INDICATION
  3. IDURSULFASE [Suspect]
     Active Substance: IDURSULFASE
     Indication: MUCOPOLYSACCHARIDOSIS II
     Dosage: 6.5 MILLILITER (0.5MG/KG)
     Route: 065
     Dates: start: 200908
  4. IDURSULFASE [Suspect]
     Active Substance: IDURSULFASE
     Dosage: 2 DOSAGE FORM
     Route: 065
  5. RISPERIDONE. [Concomitant]
     Active Substance: RISPERIDONE
     Indication: AGITATION
  6. RISPERIDONE. [Concomitant]
     Active Substance: RISPERIDONE
     Indication: HYDROCEPHALUS
     Dosage: UNK, DAILY
     Route: 065
  7. LOSEC [Concomitant]
     Active Substance: OMEPRAZOLE
     Indication: GASTROSTOMY
     Dosage: UNK, DAILY
     Route: 065

REACTIONS (13)
  - Pain [Recovered/Resolved]
  - Pyrexia [Recovered/Resolved]
  - Product dose omission issue [Not Recovered/Not Resolved]
  - Product availability issue [Unknown]
  - Cough [Not Recovered/Not Resolved]
  - Inappropriate schedule of product administration [Unknown]
  - Incorrect dosage administered [Unknown]
  - Illness [Unknown]
  - Suspected COVID-19 [Unknown]
  - Off label use [Unknown]
  - Hydrocephalus [Unknown]
  - Agitation [Unknown]
  - Sleep disorder [Unknown]

NARRATIVE: CASE EVENT DATE: 202003
